FAERS Safety Report 6979214-2 (Version None)
Quarter: 2010Q3

REPORT INFORMATION
  Report Type: 
  Country: None (occurrence: None)
  Receive Date: 20100913
  Receipt Date: 20100831
  Transmission Date: 20110219
  Serious: Yes (Hospitalization, Other)
  Sender: FDA-Public Use
  Company Number: US-ELI_LILLY_AND_COMPANY-US201006002331

PATIENT
  Sex: Female

DRUGS (22)
  1. FORTEO [Suspect]
     Indication: OSTEOPOROSIS
     Dosage: 20 UG, DAILY (1/D)
     Dates: start: 20090722, end: 20100524
  2. FORTEO [Suspect]
     Dosage: 20 UG, DAILY (1/D)
     Dates: start: 20100615
  3. MINERAL TAB [Concomitant]
  4. LEVOXYL [Concomitant]
     Dosage: 75 UG, UNK
  5. RANITIDINE HYDROCHLORIDE [Concomitant]
     Dosage: 150 MG, 2/D
  6. FOLIC ACID [Concomitant]
     Dosage: 1 MG, DAILY (1/D)
  7. OXYBUTIN [Concomitant]
     Dosage: UNK, DAILY (1/D)
  8. NITROGLYCERIN [Concomitant]
     Dosage: UNK, AS NEEDED
  9. DOCUSATE SODIUM [Concomitant]
     Dosage: 100 MG, 2/D
  10. VITAMIN TAB [Concomitant]
  11. GABAPENTIN [Concomitant]
     Dosage: 300 MG, 2/D
  12. VITAMIN D [Concomitant]
     Dosage: 1000 U, DAILY (1/D)
  13. CALCIUM W/VITAMIN D NOS [Concomitant]
  14. PLAVIX [Concomitant]
     Dosage: 75 MG, DAILY (1/D)
  15. COUMADIN [Concomitant]
     Dosage: 3 MG, EACH EVENING
  16. CORTISONE ACETATE [Concomitant]
  17. METOPROLOL TARTRATE [Concomitant]
     Dosage: 50 MG, UNK
  18. SEROQUEL [Concomitant]
     Dosage: 25 MG, UNK
  19. LOSARTAN POTASSIUM [Concomitant]
     Dosage: 25 MG, UNK
  20. CITALOPRAM HYDROBROMIDE [Concomitant]
     Dosage: 20 MG, 3/D
  21. PREDNISONE [Concomitant]
     Dosage: 5 MG, DAILY (1/D)
  22. SIMVASTATIN [Concomitant]
     Dosage: 40 MG, DAILY (1/D)

REACTIONS (8)
  - HYPOAESTHESIA [None]
  - LUMBAR RADICULOPATHY [None]
  - MUSCULAR WEAKNESS [None]
  - NERVE ROOT INJURY [None]
  - PAIN [None]
  - SPONDYLOLISTHESIS [None]
  - THERAPY CESSATION [None]
  - THROMBOSIS [None]
